FAERS Safety Report 8876446 (Version 1)
Quarter: 2012Q4

REPORT INFORMATION
  Report Type: 
  Country: ES (occurrence: ES)
  Receive Date: 20121031
  Receipt Date: 20121031
  Transmission Date: 20130627
  Serious: Yes (Hospitalization)
  Sender: FDA-Public Use
  Company Number: ES-ACCORD-015059

PATIENT
  Age: 65 Year
  Sex: Male

DRUGS (2)
  1. PREDNISONE [Concomitant]
     Route: 048
  2. GEMCITABINE [Suspect]
     Indication: SEZARY SYNDROME
     Dosage: 2 cycles

REACTIONS (4)
  - Interstitial lung disease [Recovering/Resolving]
  - Respiratory failure [Recovering/Resolving]
  - Pulmonary artery thrombosis [Unknown]
  - Off label use [Unknown]
